FAERS Safety Report 4442656-3 (Version None)
Quarter: 2004Q3

REPORT INFORMATION
  Report Type: 
  Country: None (occurrence: None)
  Receive Date: 20040903
  Receipt Date: 20040507
  Transmission Date: 20050211
  Serious: Yes (Other)
  Sender: FDA-Public Use
  Company Number: 2004UW09905

PATIENT
  Age: 44 Year
  Sex: Male

DRUGS (1)
  1. CRESTOR [Suspect]
     Dosage: 10 MG QD PO
     Route: 048

REACTIONS (4)
  - AGITATION [None]
  - MOOD SWINGS [None]
  - MYALGIA [None]
  - RASH [None]
